FAERS Safety Report 9846815 (Version 1)
Quarter: 2014Q1

REPORT INFORMATION
  Report Type: Spontaneous
  Country: GT (occurrence: GT)
  Receive Date: 20140127
  Receipt Date: 20140127
  Transmission Date: 20141002
  Serious: Yes (Death)
  Sender: FDA-Public Use
  Company Number: PHHY2014GT005294

PATIENT
  Age: 27 Year
  Sex: Female
  Weight: 43 kg

DRUGS (1)
  1. METFORMIN [Suspect]
     Indication: TYPE 2 DIABETES MELLITUS
     Dosage: 850 MG, TWICE DAILY

REACTIONS (4)
  - Cardiac arrest [Fatal]
  - Premature delivery [Unknown]
  - Maternal exposure during delivery [Unknown]
  - Drug ineffective [Unknown]
